FAERS Safety Report 10090791 (Version 1)
Quarter: 2014Q2

REPORT INFORMATION
  Report Type: Spontaneous
  Country: US (occurrence: US)
  Receive Date: 20140421
  Receipt Date: 20140421
  Transmission Date: 20141212
  Serious: No
  Sender: FDA-Public Use
  Company Number: US-BAYER-2014-054309

PATIENT
  Sex: Male

DRUGS (2)
  1. ALEVE CAPLET [Suspect]
     Indication: TOOTHACHE
     Dosage: 4 DF, ONCE
     Route: 048
     Dates: start: 20140409, end: 20140409
  2. BAYER GENUINE ASPIRIN ORIGINAL STRENGTH [Interacting]
     Indication: TOOTHACHE

REACTIONS (2)
  - Incorrect dose administered [None]
  - Labelled drug-drug interaction medication error [None]
